FAERS Safety Report 5613334-X (Version None)
Quarter: 2008Q1

REPORT INFORMATION
  Report Type: 
  Country: None (occurrence: None)
  Receive Date: 20080129
  Receipt Date: 20080118
  Transmission Date: 20080703
  Serious: Yes (Hospitalization)
  Sender: FDA-Public Use
  Company Number: 2008SP000393

PATIENT
  Age: 52 Year
  Sex: Female

DRUGS (3)
  1. TEMODAL [Suspect]
     Indication: ACTH-PRODUCING PITUITARY TUMOUR
     Dosage: PO
     Route: 048
     Dates: start: 20070101, end: 20080101
  2. HYDROCORTISONE [Concomitant]
  3. CREON [Concomitant]

REACTIONS (2)
  - CONFUSIONAL STATE [None]
  - ENCEPHALOPATHY [None]
